FAERS Safety Report 23539428 (Version 1)
Quarter: 2024Q1

REPORT INFORMATION
  Report Type: Report from Study
  Country: FR (occurrence: FR)
  Receive Date: 20240219
  Receipt Date: 20240219
  Transmission Date: 20240409
  Serious: Yes (Hospitalization)
  Sender: FDA-Public Use
  Company Number: FR-ALNYLAM PHARMACEUTICALS, INC.-ALN-2024-000944

PATIENT

DRUGS (1)
  1. AMVUTTRA [Suspect]
     Active Substance: VUTRISIRAN
     Indication: Product used for unknown indication
     Dosage: UNK
     Route: 065
     Dates: start: 20231129, end: 20231129

REACTIONS (7)
  - Radius fracture [Unknown]
  - Fall [Unknown]
  - Cognitive disorder [Unknown]
  - Weight increased [Unknown]
  - Constipation [Unknown]
  - Fatigue [Unknown]
  - Visual impairment [Unknown]
